FAERS Safety Report 4657673-8 (Version None)
Quarter: 2005Q2

REPORT INFORMATION
  Report Type: 
  Country: None (occurrence: None)
  Receive Date: 20050510
  Receipt Date: 20050217
  Transmission Date: 20051028
  Serious: Yes (Other)
  Sender: FDA-Public Use
  Company Number: PHEH2005US02179

PATIENT
  Age: 48 Year
  Sex: Female

DRUGS (7)
  1. LOTREL [Suspect]
     Indication: HYPERTENSION
     Dosage: UNK, UNK
     Dates: start: 20041229, end: 20050122
  2. CRESTOR [Concomitant]
     Dates: start: 20041001, end: 20041101
  3. MS CONTIN [Concomitant]
     Indication: BACK PAIN
  4. NASONEX [Concomitant]
     Indication: HYPERSENSITIVITY
     Dosage: 2 UNK, QD
     Route: 045
  5. ZANTAC [Concomitant]
     Indication: GASTROOESOPHAGEAL REFLUX DISEASE
     Dosage: 300 MG, BID
     Route: 048
  6. ALLEGRA [Concomitant]
     Indication: HYPERSENSITIVITY
     Dosage: 180 MG, QD
  7. QVAR 40 [Concomitant]
     Indication: ASTHMA
     Dosage: 80 MCG/BID

REACTIONS (13)
  - ALLERGY TO ARTHROPOD BITE [None]
  - ANAPHYLACTIC REACTION [None]
  - ARTHRALGIA [None]
  - DYSKINESIA [None]
  - FLUID RETENTION [None]
  - FLUSHING [None]
  - GAIT DISTURBANCE [None]
  - JOINT SWELLING [None]
  - MUCOUS MEMBRANE DISORDER [None]
  - MYCOTIC ALLERGY [None]
  - SWELLING FACE [None]
  - TREMOR [None]
  - URTICARIA [None]
